FAERS Safety Report 6349626-9 (Version None)
Quarter: 2009Q3

REPORT INFORMATION
  Report Type: 
  Country: None (occurrence: None)
  Receive Date: 20090911
  Receipt Date: 20090903
  Transmission Date: 20100115
  Serious: Yes (Hospitalization, Other)
  Sender: FDA-Public Use
  Company Number: US-PFIZER INC-2009232705

PATIENT
  Sex: Male
  Weight: 83.007 kg

DRUGS (17)
  1. LIPITOR [Suspect]
     Indication: BLOOD CHOLESTEROL INCREASED
     Dosage: 10 MG, 1X/DAY
     Route: 048
  2. LIPITOR [Suspect]
     Indication: ARTERIOSCLEROSIS CORONARY ARTERY
  3. LIPITOR [Suspect]
     Indication: HYPERLIPIDAEMIA
  4. TOPROL-XL [Concomitant]
     Dosage: 100 MG, 2X/DAY
  5. ATACAND [Concomitant]
     Dosage: 32 MG, 2X/DAY
  6. PRILOSEC [Concomitant]
     Dosage: 20 MG, 2X/DAY
  7. SOTALOL [Concomitant]
     Dosage: 80 MG, 2X/DAY
  8. ACETYLSALICYLIC ACID [Concomitant]
     Dosage: 162 MG, 1X/DAY
  9. TRIAMTERENE AND HYDROCHLOROTHIAZIDE [Concomitant]
     Dosage: 37.5/25 MG DAILY
  10. NIACIN [Concomitant]
     Dosage: 2000 MG, 1X/DAY
  11. ACIPHEX [Concomitant]
     Dosage: UNK
  12. MULTI-VITAMINS [Concomitant]
     Dosage: UNK
  13. ASCORBIC ACID [Concomitant]
     Dosage: UNK
  14. VITAMIN E [Concomitant]
     Dosage: 400 UNITS
  15. CALCIUM [Concomitant]
  16. BETACAROTENE [Concomitant]
  17. LECITHIN [Concomitant]

REACTIONS (5)
  - AGEUSIA [None]
  - BLOOD PRESSURE INADEQUATELY CONTROLLED [None]
  - CORONARY ARTERY OCCLUSION [None]
  - HYPOSMIA [None]
  - OSTEOARTHRITIS [None]
